FAERS Safety Report 17144606 (Version 1)
Quarter: 2019Q4

REPORT INFORMATION
  Report Type: Spontaneous
  Country: US (occurrence: US)
  Receive Date: 20191120
  Receipt Date: 20191120
  Transmission Date: 20200122
  Serious: Yes (Death)
  Sender: FDA-Public Use
  Company Number: None

PATIENT
  Age: 65 Year

DRUGS (2)
  1. TACROLIMUS 1MG [Suspect]
     Active Substance: TACROLIMUS
     Route: 048
     Dates: start: 20190517
  2. MYCOPHENOLATE [Suspect]
     Active Substance: MYCOPHENOLIC ACID
     Route: 048
     Dates: start: 20190711

REACTIONS (1)
  - Unevaluable event [None]
